FAERS Safety Report 6701400-7 (Version None)
Quarter: 2010Q2

REPORT INFORMATION
  Report Type: 
  Country: None (occurrence: None)
  Receive Date: 20100429
  Receipt Date: 20100422
  Transmission Date: 20101027
  Serious: Yes (Hospitalization)
  Sender: FDA-Public Use
  Company Number: 2009BI033626

PATIENT
  Age: 38 Year
  Sex: Female

DRUGS (2)
  1. TYSABRI [Suspect]
     Indication: MULTIPLE SCLEROSIS
     Route: 042
     Dates: start: 20090716, end: 20090908
  2. TYSABRI [Suspect]
     Route: 042
     Dates: start: 20091112

REACTIONS (3)
  - BRONCHOPNEUMONIA [None]
  - HEADACHE [None]
  - NAUSEA [None]
